FAERS Safety Report 11775161 (Version 1)
Quarter: 2015Q4

REPORT INFORMATION
  Report Type: Report from Study
  Country: NL (occurrence: NL)
  Receive Date: 20151124
  Receipt Date: 20151124
  Transmission Date: 20160304
  Serious: Yes (Other)
  Sender: FDA-Public Use
  Company Number: NL-AMGEN-NLDSL2015122948

PATIENT
  Age: 79 Year
  Sex: Female

DRUGS (13)
  1. XELODA [Concomitant]
     Active Substance: CAPECITABINE
     Dosage: 150 MG, FIXED DAILY 2D(1), UNK
     Dates: start: 20150827
  2. POVIDONE [Concomitant]
     Active Substance: POVIDONE
     Dosage: 0.4 ML, UNK
     Dates: start: 20150128
  3. XGEVA [Suspect]
     Active Substance: DENOSUMAB
     Indication: PRODUCT USED FOR UNKNOWN INDICATION
     Dosage: 120 MG, Q4WK
     Route: 058
     Dates: start: 20150518
  4. CALCIUM CARBONATE W/COLECALCIFEROL [Concomitant]
     Active Substance: CALCIUM CARBONATE\CHOLECALCIFEROL
     Dosage: 125 G/440 IE, 1D (1), UNK
     Dates: start: 20150518
  5. DOXYCYCLINE. [Concomitant]
     Active Substance: DOXYCYCLINE
     Dosage: 100 MG 1 D(1), GDS, UNK
     Dates: start: 20151109, end: 20151116
  6. LIDOCAINE HCL [Concomitant]
     Active Substance: LIDOCAINE HYDROCHLORIDE
     Dosage: 20 MG/ML, DMB, UNK
     Dates: start: 20150128
  7. PANTOPRAZOL [Concomitant]
     Active Substance: PANTOPRAZOLE SODIUM
     Dosage: 40 MG, GDS 1D(1), UNK
     Dates: start: 20150128
  8. ONDANSETRON [Concomitant]
     Active Substance: ONDANSETRON
     Dosage: 4 MG, GDS, UNK
  9. FUROSEMIDE. [Concomitant]
     Active Substance: FUROSEMIDE
     Dosage: 40 MG GDS 1D(2), UNK
     Dates: start: 20150128
  10. ATORVASTATINE                      /01326101/ [Concomitant]
     Active Substance: ATORVASTATIN
     Dosage: 40 MG GDS, UNK
     Dates: start: 20150128
  11. CARBASALATE CALCIUM [Concomitant]
     Active Substance: CARBASALATE
     Dosage: 100 MG 1 D(1), UNK
     Dates: start: 20150129
  12. OXYCODON [Concomitant]
     Active Substance: OXYCODONE
     Dosage: 40 MG, 2D(1), UNK
  13. METOCLOPRAMIDE. [Concomitant]
     Active Substance: METOCLOPRAMIDE
     Dosage: 10 MG, GDS, UNK
     Dates: start: 20150122

REACTIONS (2)
  - Injection site pain [Unknown]
  - Respiratory tract infection [Unknown]

NARRATIVE: CASE EVENT DATE: 20151117
